FAERS Safety Report 9915164 (Version 2)
Quarter: 2014Q1

REPORT INFORMATION
  Report Type: Spontaneous
  Country: CN (occurrence: CN)
  Receive Date: 20140220
  Receipt Date: 20140303
  Transmission Date: 20141002
  Serious: Yes (Death)
  Sender: FDA-Public Use
  Company Number: CN-ASTRAZENECA-2014SE11634

PATIENT
  Age: 73 Year
  Sex: Female

DRUGS (16)
  1. BRILINTA [Suspect]
     Indication: ANGINA PECTORIS
     Dosage: LOADING DOSE 180MG
     Route: 048
     Dates: start: 201401
  2. BRILINTA [Suspect]
     Indication: TREATMENT NONCOMPLIANCE
     Dosage: LOADING DOSE 180MG
     Route: 048
     Dates: start: 201401
  3. BRILINTA [Suspect]
     Indication: ANGINA PECTORIS
     Route: 048
     Dates: start: 201401, end: 201401
  4. BRILINTA [Suspect]
     Indication: TREATMENT NONCOMPLIANCE
     Route: 048
     Dates: start: 201401, end: 201401
  5. CLOPIDOGREL [Concomitant]
     Dosage: 300MG BURDEN DOSAGE AND 75MG QD AT FIRST
     Route: 048
     Dates: start: 20140117
  6. ATORVASTATIN [Concomitant]
     Route: 048
     Dates: start: 20140116
  7. ATORVASTATIN [Concomitant]
     Route: 048
     Dates: start: 20140116
  8. SNAKEGOURD [Concomitant]
     Dosage: 2 VIAL IVGTT QD
     Dates: start: 20140116
  9. SODIUM CHLORIDE [Concomitant]
     Dosage: 250ML IVGTT QD
     Dates: start: 20140116
  10. XUESHUANTONG [Concomitant]
     Dosage: 750ML IVGTT QD
     Dates: start: 20140116
  11. ASPIRIN [Concomitant]
     Route: 048
     Dates: start: 20140117
  12. METOPROLOL SUCCINATE [Concomitant]
     Route: 048
     Dates: start: 20140117
  13. METOPROLOL SUCCINATE [Concomitant]
     Route: 048
     Dates: start: 20140123
  14. BENAZEPRIL HYDROCHLORIDE [Concomitant]
     Route: 048
  15. PANTOPRAZOLE [Concomitant]
     Route: 048
     Dates: start: 20140117
  16. PANTOPRAZOLE [Concomitant]
     Dosage: 2.5MG IH QD
     Dates: start: 20140121

REACTIONS (3)
  - Ventricular fibrillation [Fatal]
  - Embolism [Fatal]
  - Myocardial infarction [Fatal]
